FAERS Safety Report 8427966-7 (Version None)
Quarter: 2012Q2

REPORT INFORMATION
  Report Type: 
  Country: None (occurrence: None)
  Receive Date: 20120611
  Receipt Date: 20120601
  Transmission Date: 20120825
  Serious: Yes (Hospitalization)
  Sender: FDA-Public Use
  Company Number: IT-JNJFOC-20120601904

PATIENT
  Age: 38 Year
  Sex: Male

DRUGS (2)
  1. HALDOL [Suspect]
     Indication: PRODUCT USED FOR UNKNOWN INDICATION
     Route: 048
     Dates: start: 20120425, end: 20120425
  2. HALDOL [Suspect]
     Route: 048

REACTIONS (4)
  - DYSKINESIA [None]
  - MEDICATION ERROR [None]
  - DYSTONIA [None]
  - INCORRECT DOSE ADMINISTERED [None]
